FAERS Safety Report 10718478 (Version 1)
Quarter: 2015Q1

REPORT INFORMATION
  Report Type: Spontaneous
  Country: DE (occurrence: DE)
  Receive Date: 20150119
  Receipt Date: 20150119
  Transmission Date: 20150721
  Serious: Yes (Death)
  Sender: FDA-Public Use
  Company Number: DE-CIPLA LTD.-2015DE00333

PATIENT

DRUGS (2)
  1. GEMCITABINE [Suspect]
     Active Substance: GEMCITABINE\GEMCITABINE HYDROCHLORIDE
     Indication: PANCREATIC CARCINOMA METASTATIC
     Dosage: 1,000 MG/M2) GIVEN ON DAYS 1 AND 8 OF A 21 DAY CYCLE
  2. SUNITINIB [Suspect]
     Active Substance: SUNITINIB
     Indication: PANCREATIC CARCINOMA METASTATIC
     Dosage: 50 MG/DAY IN CYCLES OF 3 WEEKS WITH A 2 WEEKS ON/1 WEEK OFF SCHEDULE

REACTIONS (1)
  - Multi-organ failure [Fatal]
